FAERS Safety Report 7400067-2 (Version None)
Quarter: 2011Q2

REPORT INFORMATION
  Report Type: 
  Country: None (occurrence: None)
  Receive Date: 20110407
  Receipt Date: 20110331
  Transmission Date: 20111010
  Serious: Yes (Other)
  Sender: FDA-Public Use
  Company Number: IE-PFIZER INC-2011072578

PATIENT
  Age: 65 Year
  Sex: Female

DRUGS (1)
  1. TOVIAZ [Suspect]
     Indication: HYPERTONIC BLADDER
     Dosage: 4 MG, UNK,
     Dates: start: 20110101, end: 20110101

REACTIONS (3)
  - DRY EYE [None]
  - METAMORPHOPSIA [None]
  - EYE OEDEMA [None]
